FAERS Safety Report 7062198-9 (Version None)
Quarter: 2010Q4

REPORT INFORMATION
  Report Type: 
  Country: None (occurrence: None)
  Receive Date: 20101026
  Receipt Date: 20101018
  Transmission Date: 20110411
  Serious: No
  Sender: FDA-Public Use
  Company Number: US-JNJFOC-20101006189

PATIENT
  Sex: Female
  Weight: 41.73 kg

DRUGS (2)
  1. FENTANYL CITRATE [Suspect]
     Indication: PRODUCT USED FOR UNKNOWN INDICATION
     Dosage: NDC NUMBER: 0781-7242-55
     Route: 062
  2. FENTANYL CITRATE [Suspect]
     Route: 062

REACTIONS (3)
  - NASOPHARYNGITIS [None]
  - PRODUCT ADHESION ISSUE [None]
  - WRONG TECHNIQUE IN DRUG USAGE PROCESS [None]
